FAERS Safety Report 8989971 (Version 1)
Quarter: 2012Q4

REPORT INFORMATION
  Report Type: 
  Country: GB (occurrence: GB)
  Receive Date: 20121228
  Receipt Date: 20121228
  Transmission Date: 20130627
  Serious: Yes (Other)
  Sender: FDA-Public Use
  Company Number: GB-WATSON-2012-22746

PATIENT

DRUGS (1)
  1. ALENDRONATE SODIUM- (UNKNOWN) [Suspect]
     Indication: PRODUCT USED FOR UNKNOWN INDICATION
     Dosage: Two doses taken
     Route: 065

REACTIONS (3)
  - Swelling face [Recovered/Resolved]
  - Lip swelling [Unknown]
  - Eye swelling [Unknown]
